FAERS Safety Report 13170032 (Version 2)
Quarter: 2017Q1

REPORT INFORMATION
  Report Type: Spontaneous
  Country: GB (occurrence: GB)
  Receive Date: 20170201
  Receipt Date: 20170201
  Transmission Date: 20170428
  Serious: Yes (Other)
  Sender: FDA-Public Use
  Company Number: GB-CIPLA LTD.-2017GB01389

PATIENT

DRUGS (1)
  1. AMLODIPINE BESYLATE. [Suspect]
     Active Substance: AMLODIPINE BESYLATE
     Indication: HYPERTENSION
     Dosage: 10 MG, UNK
     Route: 048
     Dates: start: 20161220, end: 20170111

REACTIONS (11)
  - Pollakiuria [Unknown]
  - Sneezing [Unknown]
  - Cough [Unknown]
  - Depression [Unknown]
  - Blood pressure fluctuation [Unknown]
  - Flushing [Unknown]
  - Dyspnoea [Unknown]
  - Fatigue [Unknown]
  - Mental disorder [Unknown]
  - Pruritus [Unknown]
  - Lethargy [Unknown]

NARRATIVE: CASE EVENT DATE: 20161220
